FAERS Safety Report 14820348 (Version 1)
Quarter: 2018Q2

REPORT INFORMATION
  Report Type: Spontaneous
  Country: US (occurrence: US)
  Receive Date: 20180427
  Receipt Date: 20180427
  Transmission Date: 20180711
  Serious: No
  Sender: FDA-Public Use
  Company Number: US-ASPEN-GLO2018US003589

PATIENT

DRUGS (1)
  1. LEUKERAN [Suspect]
     Active Substance: CHLORAMBUCIL
     Indication: LEUKAEMIA
     Dosage: 2 MG
     Route: 048
     Dates: start: 20180412

REACTIONS (2)
  - Product storage error [Unknown]
  - Drug administration error [Unknown]

NARRATIVE: CASE EVENT DATE: 20180411
